FAERS Safety Report 4808594-9 (Version None)
Quarter: 2005Q4

REPORT INFORMATION
  Report Type: 
  Country: None (occurrence: None)
  Receive Date: 20051025
  Receipt Date: 20051013
  Transmission Date: 20060501
  Serious: Yes (Life-Threatening)
  Sender: FDA-Public Use
  Company Number: FR-GLAXOSMITHKLINE-B0397876A

PATIENT
  Age: 35 Year
  Sex: Female

DRUGS (7)
  1. AUGMENTIN '125' [Suspect]
     Route: 042
     Dates: start: 20050602, end: 20050602
  2. DIPRIVAN [Concomitant]
  3. XYLOCAINE [Concomitant]
     Dates: start: 20050602
  4. FENTANYL [Concomitant]
     Dates: start: 20050602
  5. PERFALGAN [Concomitant]
     Dates: start: 20050602
  6. SEVORANE [Concomitant]
     Dates: start: 20050602
  7. RINGER'S [Concomitant]
     Dates: start: 20050602

REACTIONS (5)
  - ANAPHYLACTIC SHOCK [None]
  - GENERALISED ERYTHEMA [None]
  - HYPOTENSION [None]
  - OXYGEN SATURATION DECREASED [None]
  - RALES [None]
